FAERS Safety Report 4659180-5 (Version None)
Quarter: 2005Q2

REPORT INFORMATION
  Report Type: 
  Country: None (occurrence: None)
  Receive Date: 20050502
  Receipt Date: 20050323
  Transmission Date: 20051028
  Serious: No
  Sender: FDA-Public Use
  Company Number: 200419733US

PATIENT
  Age: 64 Year
  Sex: Female

DRUGS (2)
  1. KETEK [Suspect]
     Dates: start: 20041216, end: 20041220
  2. BLOOD PRESSURE MEDICATIONS [Concomitant]

REACTIONS (2)
  - LACRIMATION INCREASED [None]
  - VISION BLURRED [None]
